FAERS Safety Report 8599953-X (Version None)
Quarter: 2012Q3

REPORT INFORMATION
  Report Type: 
  Country: None (occurrence: None)
  Receive Date: 20120816
  Receipt Date: 20120808
  Transmission Date: 20120928
  Serious: Yes (Other)
  Sender: FDA-Public Use
  Company Number: KR-GILEAD-2012-0058774

PATIENT
  Age: 60 Year
  Sex: Male

DRUGS (5)
  1. ENTECAVIR [Suspect]
     Indication: HEPATITIS B
     Dosage: 1 MG, UNK
     Dates: start: 20100820, end: 20120521
  2. VIREAD [Suspect]
     Indication: HEPATITIS B
     Dosage: 300 MG, QOD
     Route: 048
     Dates: start: 20120618
  3. VIREAD [Suspect]
     Dosage: 300 MG, QD
     Route: 048
     Dates: start: 20120521, end: 20120617
  4. HEPSERA [Suspect]
     Indication: HEPATITIS B
     Dosage: 10 MG, UNK
     Dates: start: 20100820, end: 20120521
  5. SEBIVO [Suspect]
     Indication: HEPATITIS B
     Dosage: 600 MG, QD
     Route: 048
     Dates: start: 20120521

REACTIONS (6)
  - EYELID OEDEMA [None]
  - THERAPEUTIC RESPONSE DECREASED [None]
  - ASTHENIA [None]
  - BLOOD CREATINE PHOSPHOKINASE INCREASED [None]
  - BLOOD CREATININE INCREASED [None]
  - FATIGUE [None]
